FAERS Safety Report 14576827 (Version 1)
Quarter: 2018Q1

REPORT INFORMATION
  Report Type: Spontaneous
  Country: US (occurrence: US)
  Receive Date: 20180225
  Receipt Date: 20180225
  Transmission Date: 20180509
  Serious: Yes (Other)
  Sender: FDA-Public Use
  Company Number: None

PATIENT
  Age: 21 Month
  Sex: Male
  Weight: 11.7 kg

DRUGS (1)
  1. TAMIFLU [Suspect]
     Active Substance: OSELTAMIVIR PHOSPHATE
     Indication: INFLUENZA
     Dates: start: 20180219, end: 20180221

REACTIONS (6)
  - Fatigue [None]
  - Discomfort [None]
  - Cough [None]
  - Therapy change [None]
  - Dizziness [None]
  - Decreased appetite [None]

NARRATIVE: CASE EVENT DATE: 20180219
